FAERS Safety Report 4877568-4 (Version None)
Quarter: 2006Q1

REPORT INFORMATION
  Report Type: 
  Country: None (occurrence: None)
  Receive Date: 20060111
  Receipt Date: 20060103
  Transmission Date: 20060701
  Serious: Yes (Hospitalization)
  Sender: FDA-Public Use
  Company Number: FR-GLAXOSMITHKLINE-B0404998A

PATIENT
  Age: 69 Year
  Sex: Male

DRUGS (5)
  1. TRACRIUM [Suspect]
     Indication: ANAESTHESIA
     Route: 042
     Dates: start: 20050615, end: 20050615
  2. ZINNAT INJECTABLE [Suspect]
     Dosage: 250U UNKNOWN
     Route: 042
     Dates: start: 20050615, end: 20050615
  3. ALFENTANIL [Suspect]
     Indication: ANAESTHESIA
     Route: 042
     Dates: start: 20050615, end: 20050615
  4. MIDAZOLAM HCL [Suspect]
     Indication: ANAESTHESIA
     Route: 042
     Dates: start: 20050615, end: 20050615
  5. DIPRIVAN [Suspect]
     Indication: ANAESTHESIA
     Route: 042
     Dates: start: 20050615, end: 20050615

REACTIONS (3)
  - ANAPHYLACTIC SHOCK [None]
  - ERYTHEMA [None]
  - HYPOTENSION [None]
